FAERS Safety Report 12690794 (Version 1)
Quarter: 2016Q3

REPORT INFORMATION
  Report Type: Other
  Country: NL (occurrence: NL)
  Receive Date: 20160826
  Receipt Date: 20160826
  Transmission Date: 20161109
  Serious: Yes (Other)
  Sender: FDA-Public Use
  Company Number: NL-WARNER CHILCOTT, LLC-1056785

PATIENT
  Age: 18 Year
  Sex: Male

DRUGS (2)
  1. RISEDRONATE [Suspect]
     Active Substance: RISEDRONATE SODIUM
     Route: 048
     Dates: start: 2013, end: 2015
  2. PAMIDRONATE [Suspect]
     Active Substance: PAMIDRONATE DISODIUM
     Route: 042
     Dates: start: 2006, end: 2012

REACTIONS (4)
  - Fall [Recovered/Resolved]
  - Atypical femur fracture [Recovered/Resolved]
  - Pathological fracture [Recovered/Resolved]
  - Pain in extremity [Recovered/Resolved]

NARRATIVE: CASE EVENT DATE: 2013
